FAERS Safety Report 24090135 (Version 1)
Quarter: 2024Q3

REPORT INFORMATION
  Report Type: Spontaneous
  Country: FR (occurrence: FR)
  Receive Date: 20240715
  Receipt Date: 20240715
  Transmission Date: 20241016
  Serious: Yes (Life-Threatening)
  Sender: CHEPLAPHARM
  Company Number: None

PATIENT
  Age: 61 Year
  Sex: Female
  Weight: 70 kg

DRUGS (9)
  1. OLANZAPINE [Suspect]
     Active Substance: OLANZAPINE
     Indication: Psychotic disorder
     Dosage: 1-0-0 ?DAILY DOSE: 10 MILLIGRAM
     Route: 048
     Dates: end: 20240207
  2. OLANZAPINE [Suspect]
     Active Substance: OLANZAPINE
     Indication: Psychotic disorder
     Dosage: 1-0-0 ?DAILY DOSE: 5 MILLIGRAM
     Route: 048
     Dates: end: 20240207
  3. BIMATOPROST [Concomitant]
     Active Substance: BIMATOPROST
     Dosage: 0.3 MG/ML; 0-0-1 ; OPHTHALMIC USE
     Route: 047
  4. BRINZOLAMIDE [Concomitant]
     Active Substance: BRINZOLAMIDE
     Dosage: 10 MG/ML; 1-0-1; BID; OPHTHALMIC ROUTE
     Route: 047
  5. VIMPAT [Concomitant]
     Active Substance: LACOSAMIDE
     Dosage: 1-0-1?DAILY DOSE: 2 DOSAGE FORM
     Route: 048
  6. DAPAGLIFLOZIN [Concomitant]
     Active Substance: DAPAGLIFLOZIN
     Dosage: 1-0-0?DAILY DOSE: 10 MILLIGRAM
     Route: 048
  7. KARDEGIC [Concomitant]
     Active Substance: ASPIRIN DL-LYSINE
     Dosage: 0-1-0?DAILY DOSE: 75 MILLIGRAM
     Route: 048
  8. ALPRAZOLAM [Concomitant]
     Active Substance: ALPRAZOLAM
     Dosage: 0.5-0-1 ?DAILY DOSE: 1.5 MILLIGRAM
     Route: 048
  9. METFORMIN [Concomitant]
     Active Substance: METFORMIN HYDROCHLORIDE
     Dosage: PO: 1-0-1 ?DAILY DOSE: 2000 MILLIGRAM
     Route: 048

REACTIONS (1)
  - Inappropriate antidiuretic hormone secretion [Recovered/Resolved]

NARRATIVE: CASE EVENT DATE: 20240207
